FAERS Safety Report 7325453-0 (Version None)
Quarter: 2011Q1

REPORT INFORMATION
  Report Type: 
  Country: None (occurrence: None)
  Receive Date: 20110218
  Receipt Date: 20110203
  Transmission Date: 20110831
  Serious: Yes (Death, Hospitalization)
  Sender: FDA-Public Use
  Company Number: AUR-APL-2011-00210

PATIENT
  Age: 81 Year
  Sex: Male
  Weight: 70 kg

DRUGS (5)
  1. SIMVASTATIN [Suspect]
     Indication: MYOCARDIAL ISCHAEMIA
     Dosage: 40MG - ORAL
     Route: 048
  2. OMEPRAZOLE [Concomitant]
  3. CLOPIDOGREL HYDROGEN SULFATE [Concomitant]
  4. BISOPROLOL FUMARATE [Concomitant]
  5. CLARITHROMYCIN [Concomitant]

REACTIONS (4)
  - RENAL FAILURE ACUTE [None]
  - RHABDOMYOLYSIS [None]
  - DIALYSIS [None]
  - BRONCHOPNEUMONIA [None]
